FAERS Safety Report 6307541-0 (Version None)
Quarter: 2009Q3

REPORT INFORMATION
  Report Type: 
  Country: None (occurrence: None)
  Receive Date: 20090810
  Receipt Date: 20090724
  Transmission Date: 20100115
  Serious: Yes (Other)
  Sender: FDA-Public Use
  Company Number: GXKR2009JP08489

PATIENT
  Age: 69 Year
  Sex: Male

DRUGS (4)
  1. RIFAMPICIN [Suspect]
     Indication: PULMONARY TUBERCULOSIS
     Dosage: ORAL
     Route: 048
  2. ESANBUTOL (NGX) (ETHAMBUTOL) TABLET [Suspect]
     Indication: PULMONARY TUBERCULOSIS
     Dosage: ORAL
     Route: 048
  3. ISONIAZID [Concomitant]
     Indication: PULMONARY TUBERCULOSIS
     Dosage: ORAL
     Route: 048
  4. CYCLOSPORINE [Concomitant]

REACTIONS (3)
  - ADRENAL INSUFFICIENCY [None]
  - DRUG INTERACTION [None]
  - DRUG LEVEL DECREASED [None]
